FAERS Safety Report 9725333 (Version 1)
Quarter: 2013Q4

REPORT INFORMATION
  Report Type: Spontaneous
  Country: BE (occurrence: BE)
  Receive Date: 20131203
  Receipt Date: 20131203
  Transmission Date: 20140711
  Serious: Yes (Hospitalization)
  Sender: FDA-Public Use
  Company Number: BE-MYLANLABS-2013S1026465

PATIENT
  Age: 15 Year
  Sex: Male

DRUGS (3)
  1. ISOTRETINOIN [Suspect]
     Indication: ACNE
     Route: 065
  2. MINOCYCLINE [Suspect]
     Indication: ACNE
     Dosage: 100MG DAILY
     Route: 065
  3. ADAPALENE [Concomitant]
     Indication: ACNE
     Route: 061

REACTIONS (1)
  - Rhabdomyolysis [Recovered/Resolved]
